FAERS Safety Report 7764521-6 (Version None)
Quarter: 2011Q3

REPORT INFORMATION
  Report Type: 
  Country: None (occurrence: None)
  Receive Date: 20110916
  Receipt Date: 20110906
  Transmission Date: 20111222
  Serious: Yes (Other)
  Sender: FDA-Public Use
  Company Number: TUK2011A00136

PATIENT
  Age: 67 Year
  Sex: Male

DRUGS (11)
  1. METFORMIN HCL [Concomitant]
  2. GAVISCON [Concomitant]
  3. HYDROXYPROPYL GUAR GUM (HYPROMELLOSE) [Concomitant]
  4. GLICLAZIDE (GLICLAZIDE) [Concomitant]
  5. ACETAMINOPHEN [Concomitant]
  6. RAMIPRIL [Concomitant]
  7. ASPRIN(ACETYLSALICYLIC ACID) [Concomitant]
  8. ATORVASTATIN [Concomitant]
  9. ACTOS [Suspect]
     Indication: DIABETES MELLITUS
     Dosage: 30 MG (30 MG,  1 IN 1 D), ORAL
     Route: 048
     Dates: start: 20051019
  10. FERROUS SULFATE TAB [Concomitant]
  11. OMEPRAZALE (OMEPRA#7I.E) [Concomitant]

REACTIONS (1)
  - BLADDER CANCER [None]
